FAERS Safety Report 9380049 (Version 2)
Quarter: 2013Q3

REPORT INFORMATION
  Report Type: Report from Study
  Country: JP (occurrence: JP)
  Receive Date: 20130702
  Receipt Date: 20130802
  Transmission Date: 20140515
  Serious: Yes (Hospitalization)
  Sender: FDA-Public Use
  Company Number: JP-PFIZER INC-2013172934

PATIENT
  Age: 70 Year
  Sex: 0
  Weight: 39.4 kg

DRUGS (4)
  1. SUNITINIB MALATE [Suspect]
     Indication: PANCREATIC NEUROENDOCRINE TUMOUR
     Dosage: 25 MG, 1X/DAY
     Route: 048
     Dates: start: 20130108, end: 20130131
  2. SUNITINIB MALATE [Suspect]
     Dosage: 12.5 MG, 1X/DAY
     Route: 048
     Dates: start: 20130404, end: 20130622
  3. URSO [Concomitant]
     Dosage: 300 MG, 1X/DAY
     Route: 048
  4. PARIET [Concomitant]
     Dosage: 20 MG, 1X/DAY
     Route: 048

REACTIONS (2)
  - Anaemia [Recovering/Resolving]
  - Febrile neutropenia [Recovering/Resolving]
